FAERS Safety Report 14478798 (Version 1)
Quarter: 2018Q1

REPORT INFORMATION
  Report Type: Spontaneous
  Country: PT (occurrence: PT)
  Receive Date: 20180202
  Receipt Date: 20180202
  Transmission Date: 20180509
  Serious: Yes (Hospitalization, Other)
  Sender: FDA-Public Use
  Company Number: PT-AUROBINDO-AUR-APL-2018-003965

PATIENT
  Age: 15 Year
  Sex: Male

DRUGS (12)
  1. LAMOTRIGINE. [Suspect]
     Active Substance: LAMOTRIGINE
     Indication: TIC
  2. CLONAZEPAM. [Suspect]
     Active Substance: CLONAZEPAM
     Indication: ANXIETY
     Dosage: ()
     Route: 065
  3. FLUVOXAMINE [Suspect]
     Active Substance: FLUVOXAMINE
     Indication: INTENTIONAL SELF-INJURY
  4. CLONAZEPAM. [Suspect]
     Active Substance: CLONAZEPAM
     Indication: INTENTIONAL SELF-INJURY
  5. FLUVOXAMINE [Suspect]
     Active Substance: FLUVOXAMINE
     Indication: TIC
     Dosage: ()
  6. PIMOZIDE. [Suspect]
     Active Substance: PIMOZIDE
     Indication: INTENTIONAL SELF-INJURY
  7. FLUVOXAMINE [Suspect]
     Active Substance: FLUVOXAMINE
     Indication: ANXIETY
     Dosage: ()
     Route: 065
  8. PIMOZIDE. [Suspect]
     Active Substance: PIMOZIDE
     Indication: TIC
     Dosage: ()
  9. LAMOTRIGINE. [Suspect]
     Active Substance: LAMOTRIGINE
     Indication: ANXIETY
     Dosage: ()
     Route: 065
  10. LAMOTRIGINE. [Suspect]
     Active Substance: LAMOTRIGINE
     Indication: INTENTIONAL SELF-INJURY
     Dosage: ()
  11. CLONAZEPAM. [Suspect]
     Active Substance: CLONAZEPAM
     Indication: TIC
  12. PIMOZIDE. [Suspect]
     Active Substance: PIMOZIDE
     Indication: ANXIETY
     Dosage: ()
     Route: 065

REACTIONS (3)
  - Off label use [Unknown]
  - Product use in unapproved indication [Unknown]
  - Neuroleptic malignant syndrome [Unknown]
